FAERS Safety Report 8434857-4 (Version None)
Quarter: 2012Q2

REPORT INFORMATION
  Report Type: 
  Country: None (occurrence: None)
  Receive Date: 20120614
  Receipt Date: 20120606
  Transmission Date: 20120825
  Serious: Yes (Other)
  Sender: FDA-Public Use
  Company Number: US-BAYER-2012-019953

PATIENT
  Age: 29 Year
  Sex: Female
  Weight: 79.365 kg

DRUGS (3)
  1. YAZ [Suspect]
     Dosage: UNK
     Dates: start: 20060401, end: 20070101
  2. YAZ [Suspect]
     Dosage: UNK
     Dates: start: 20080601, end: 20090101
  3. YAZ [Suspect]
     Dosage: UNK
     Dates: start: 20050401, end: 20050701

REACTIONS (3)
  - PAIN [None]
  - CHOLECYSTITIS CHRONIC [None]
  - BILIARY COLIC [None]
